FAERS Safety Report 16675666 (Version 1)
Quarter: 2019Q3

REPORT INFORMATION
  Report Type: Spontaneous
  Country: US (occurrence: US)
  Receive Date: 20190806
  Receipt Date: 20190806
  Transmission Date: 20191004
  Serious: Yes (Other)
  Sender: FDA-Public Use
  Company Number: PHHY2019US175836

PATIENT
  Age: 69 Year
  Sex: Male
  Weight: 116 kg

DRUGS (15)
  1. ASPIRIN. [Concomitant]
     Active Substance: ASPIRIN
     Indication: PRODUCT USED FOR UNKNOWN INDICATION
     Route: 065
  2. WARFARIN [Concomitant]
     Active Substance: WARFARIN
     Indication: PRODUCT USED FOR UNKNOWN INDICATION
     Dosage: UNK
     Route: 065
  3. LEVOFLOXACIN. [Concomitant]
     Active Substance: LEVOFLOXACIN
     Indication: INFECTION
     Dosage: 500 MG, QD
     Route: 048
  4. ESOMEPRAZOLE. [Concomitant]
     Active Substance: ESOMEPRAZOLE MAGNESIUM
     Indication: PRODUCT USED FOR UNKNOWN INDICATION
     Dosage: 20 MG, QD
     Route: 065
  5. SIMVASTATIN. [Concomitant]
     Active Substance: SIMVASTATIN
     Indication: PRODUCT USED FOR UNKNOWN INDICATION
     Dosage: UNK UNK, QD
     Route: 065
  6. ERTAPENEM. [Concomitant]
     Active Substance: ERTAPENEM SODIUM
     Indication: PRODUCT USED FOR UNKNOWN INDICATION
     Dosage: 1 G, QD
     Route: 042
  7. CIPROFLOXACIN. [Concomitant]
     Active Substance: CIPROFLOXACIN
     Indication: INFECTION
     Route: 065
  8. ACETAMINOPHEN. [Concomitant]
     Active Substance: ACETAMINOPHEN
     Indication: PAIN
     Route: 065
  9. FOLATE [Concomitant]
     Active Substance: FOLATE SODIUM
     Indication: PRODUCT USED FOR UNKNOWN INDICATION
     Dosage: UNK UNK, QD
     Route: 065
  10. METHOTREXATE SODIUM. [Interacting]
     Active Substance: METHOTREXATE SODIUM
     Indication: PSORIATIC ARTHROPATHY
     Dosage: 10 MG, QW2 (ON WEDNESDAYS AND SATURDAYS)
     Route: 048
  11. CEFTRIAXONE. [Suspect]
     Active Substance: CEFTRIAXONE
     Indication: INFECTION
     Dosage: UNK (FOR 4 WEEKS)
     Route: 065
  12. IBUPROFEN. [Concomitant]
     Active Substance: IBUPROFEN
     Indication: PAIN
     Dosage: 800 MG, Q6H
     Route: 065
  13. NAFCILLIN [Concomitant]
     Active Substance: NAFCILLIN SODIUM
     Indication: INFECTION
     Dosage: UNK
     Route: 065
  14. CEFTRIAXONE. [Interacting]
     Active Substance: CEFTRIAXONE
     Dosage: 2 G, QD
     Route: 042
  15. AMPICILLIN [Concomitant]
     Active Substance: AMPICILLIN
     Indication: INFECTION
     Dosage: UNK
     Route: 065

REACTIONS (8)
  - Pneumonia aspiration [Unknown]
  - Blood pressure systolic increased [Unknown]
  - Neutropenia [Recovered/Resolved]
  - Pyrexia [Recovered/Resolved]
  - Drug interaction [Unknown]
  - Heart rate increased [Unknown]
  - Chills [Unknown]
  - Respiratory rate increased [Unknown]
